FAERS Safety Report 8529457 (Version 2)
Quarter: 2012Q4

REPORT INFORMATION
  Report Type: 
  Country: FR (occurrence: FR)
  Receive Date: 20120425
  Receipt Date: 20121204
  Transmission Date: 20130627
  Serious: Yes (Death, Other)
  Sender: FDA-Public Use
  Company Number: FR-ROCHE-1059123

PATIENT

DRUGS (3)
  1. RIBAVIRIN [Suspect]
     Indication: HEPATITIS C
     Dosage: 24 weeks
     Route: 065
  2. PEG-INTERFERON ALFA 2A [Suspect]
     Indication: HEPATITIS C
     Dosage: 24 Weeks
     Route: 065
  3. DACLATASVIR [Suspect]
     Indication: HEPATITIS C
     Dosage: Dose blinded
     Route: 065

REACTIONS (2)
  - Metabolic acidosis [Fatal]
  - Pancytopenia [Unknown]
